FAERS Safety Report 11784876 (Version 2)
Quarter: 2016Q1

REPORT INFORMATION
  Report Type: Spontaneous
  Country: JP (occurrence: JP)
  Receive Date: 20151130
  Receipt Date: 20160109
  Transmission Date: 20160525
  Serious: Yes (Hospitalization, Other)
  Sender: FDA-Public Use
  Company Number: JP-ACCORD-035867

PATIENT
  Age: 62 Year
  Sex: Female

DRUGS (3)
  1. METHOTREXATE [Suspect]
     Active Substance: METHOTREXATE
     Indication: RHEUMATOID ARTHRITIS
  2. MIZORIBINE [Concomitant]
     Active Substance: MIZORIBINE
     Indication: RHEUMATOID ARTHRITIS
  3. PREDNISOLONE. [Concomitant]
     Active Substance: PREDNISOLONE

REACTIONS (3)
  - Epstein-Barr virus infection [Recovered/Resolved]
  - Lymphoproliferative disorder [Recovered/Resolved]
  - Diffuse large B-cell lymphoma [Recovered/Resolved]
